FAERS Safety Report 6508724-7 (Version None)
Quarter: 2009Q4

REPORT INFORMATION
  Report Type: 
  Country: None (occurrence: None)
  Receive Date: 20091221
  Receipt Date: 20090722
  Transmission Date: 20100525
  Serious: No
  Sender: FDA-Public Use
  Company Number: US-ASTRAZENECA-2009SE05492

PATIENT
  Age: 56 Year
  Sex: Female
  Weight: 74.8 kg

DRUGS (3)
  1. CRESTOR [Suspect]
     Dosage: 10 MG  TOTAL DAILY DOSE
     Route: 048
  2. CYMBALTA [Concomitant]
  3. LORAZEPAM [Concomitant]

REACTIONS (2)
  - CONSTIPATION [None]
  - CONTUSION [None]
